FAERS Safety Report 21239462 (Version 1)
Quarter: 2022Q3

REPORT INFORMATION
  Report Type: Report from Study
  Country: US (occurrence: US)
  Receive Date: 20220822
  Receipt Date: 20220822
  Transmission Date: 20221027
  Serious: No
  Sender: FDA-Public Use
  Company Number: US-NOVARTISTESTPH-NVSC2022US186016

PATIENT
  Age: 66 Year
  Sex: Male

DRUGS (1)
  1. ZORTRESS [Suspect]
     Active Substance: EVEROLIMUS
     Indication: Liver transplant
     Dosage: 0.5 MG, BID (1 TABLET TWICE DAILY)
     Route: 048
     Dates: start: 20151219

REACTIONS (1)
  - Product prescribing issue [Recovered/Resolved]

NARRATIVE: CASE EVENT DATE: 20220707
